FAERS Safety Report 21172625 (Version 1)
Quarter: 2022Q3

REPORT INFORMATION
  Report Type: Spontaneous
  Country: US (occurrence: None)
  Receive Date: 20220803
  Receipt Date: 20220803
  Transmission Date: 20221027
  Serious: No
  Sender: FDA-Public Use
  Company Number: None

PATIENT
  Age: 57 Year
  Sex: Female

DRUGS (3)
  1. VARITHENA [Suspect]
     Active Substance: POLIDOCANOL
     Indication: Product used for unknown indication
  2. UNSPECIFIED INGREDIENT [Suspect]
     Active Substance: UNSPECIFIED INGREDIENT
     Indication: Product used for unknown indication
  3. Hclz [Concomitant]

REACTIONS (6)
  - Drug ineffective [None]
  - Peripheral swelling [None]
  - Vein disorder [None]
  - Vascular pain [None]
  - Hypoaesthesia [None]
  - Muscle tightness [None]

NARRATIVE: CASE EVENT DATE: 20220620
